FAERS Safety Report 7634320-4 (Version None)
Quarter: 2011Q3

REPORT INFORMATION
  Report Type: 
  Country: None (occurrence: None)
  Receive Date: 20110725
  Receipt Date: 20110719
  Transmission Date: 20111222
  Serious: Yes (Other)
  Sender: FDA-Public Use
  Company Number: US-PFIZER INC-2011019158

PATIENT
  Sex: Female
  Weight: 77 kg

DRUGS (10)
  1. LUMIGAN [Suspect]
     Indication: GLAUCOMA
     Dosage: 1 GTT, UNK, IN EACH EYE
     Route: 031
     Dates: start: 20110301, end: 20110626
  2. LUMIGAN [Suspect]
     Indication: CATARACT
  3. XALATAN [Suspect]
     Indication: CATARACT
  4. ATACAND [Concomitant]
     Dosage: UNK
  5. ASPIRIN [Suspect]
     Indication: CARDIAC DISORDER
     Dosage: UNK
     Dates: start: 20110501, end: 20110501
  6. XALATAN [Suspect]
     Indication: GLAUCOMA
  7. SIMVASTATIN [Concomitant]
     Indication: BLOOD CHOLESTEROL INCREASED
     Dosage: 10 MG, DAILY
  8. NADOLOL [Concomitant]
     Indication: HYPERTENSION
     Dosage: 40 MG, 2X/DAY
  9. XALATAN [Suspect]
     Indication: INTRAOCULAR PRESSURE INCREASED
     Dosage: 2 GTT, 1X/DAY
     Dates: start: 20021122, end: 20110105
  10. SYNTHROID [Concomitant]
     Indication: HYPERTHYROIDISM
     Dosage: 50 MCG, DAILY

REACTIONS (5)
  - RASH [None]
  - EYE DISORDER [None]
  - EYE IRRITATION [None]
  - HAEMORRHAGE [None]
  - VISUAL IMPAIRMENT [None]
